FAERS Safety Report 4293827-0 (Version None)
Quarter: 2004Q1

REPORT INFORMATION
  Report Type: 
  Country: None (occurrence: None)
  Receive Date: 20040212
  Receipt Date: 20040122
  Transmission Date: 20041129
  Serious: Yes (Life-Threatening, Hospitalization, Other)
  Sender: FDA-Public Use
  Company Number: PHBS2004JP01158

PATIENT
  Age: 88 Year
  Sex: Female
  Weight: 38 kg

DRUGS (7)
  1. LOCHOL [Suspect]
     Indication: HYPERCHOLESTEROLAEMIA
     Dosage: 30 MG/DAY
     Route: 048
     Dates: start: 20030101, end: 20031201
  2. PANALDINE [Suspect]
     Dosage: 1 DF/DAY
     Route: 048
  3. MAGNESIUM OXIDE [Suspect]
     Indication: CONSTIPATION
     Dosage: 0.5 G/DAY
     Route: 048
  4. URSO [Suspect]
     Indication: CHOLELITHIASIS
     Dosage: 3 DF/DAY
     Route: 048
  5. EXCELASE [Suspect]
     Dosage: 3 DF/DAY
     Route: 048
  6. GASMOTIN [Suspect]
     Dosage: 3 DF/DAY
     Route: 048
  7. AMLODIN [Suspect]
     Indication: HYPERTENSION
     Dosage: 5 MG/DAY
     Route: 048

REACTIONS (11)
  - ALANINE AMINOTRANSFERASE INCREASED [None]
  - ASPARTATE AMINOTRANSFERASE INCREASED [None]
  - ASTHENIA [None]
  - BLOOD CREATINE PHOSPHOKINASE INCREASED [None]
  - BLOOD LACTATE DEHYDROGENASE INCREASED [None]
  - CHOLELITHIASIS [None]
  - DYSPEPSIA [None]
  - HYPERTENSION [None]
  - MUSCLE ENZYME INCREASED [None]
  - MYOSITIS [None]
  - POLYMYOSITIS [None]
